FAERS Safety Report 4893490-1 (Version None)
Quarter: 2006Q1

REPORT INFORMATION
  Report Type: 
  Country: None (occurrence: None)
  Receive Date: 20060127
  Receipt Date: 20050906
  Transmission Date: 20060701
  Serious: No
  Sender: FDA-Public Use
  Company Number: US-BRISTOL-MYERS SQUIBB COMPANY-13100946

PATIENT
  Sex: Female
  Weight: 54 kg

DRUGS (2)
  1. KENALOG [Suspect]
     Indication: ACNE CYSTIC
     Dates: start: 20050701
  2. NYSTATIN [Concomitant]

REACTIONS (1)
  - INJECTION SITE ATROPHY [None]
